FAERS Safety Report 10673547 (Version 1)
Quarter: 2014Q4

REPORT INFORMATION
  Report Type: Spontaneous
  Country: JP (occurrence: None)
  Receive Date: 20141222
  Receipt Date: 20141222
  Transmission Date: 20150529
  Serious: Yes (Death, Hospitalization)
  Sender: FDA-Public Use
  Company Number: FK201406309

PATIENT
  Age: 56 Year
  Sex: Female

DRUGS (2)
  1. BEVACIZUMAB (BEVACIZUMAB) (BEVACIZUMAB) [Suspect]
     Active Substance: BEVACIZUMAB
     Indication: METASTASES TO LYMPH NODES
  2. PACLITAXEL (MANUFACTURER UNKNOWN) (PACLITAXEL) (PACLITAXEL) [Suspect]
     Active Substance: PACLITAXEL
     Indication: METASTASES TO LYMPH NODES

REACTIONS (9)
  - Aspiration [None]
  - Empyema [None]
  - Bronchopleural fistula [None]
  - Pneumonia [None]
  - Sputum culture positive [None]
  - Staphylococcus test positive [None]
  - Multi-organ disorder [None]
  - Metastases to lymph nodes [None]
  - Superior vena cava syndrome [None]
